FAERS Safety Report 5245191-8 (Version None)
Quarter: 2007Q1

REPORT INFORMATION
  Report Type: 
  Country: None (occurrence: None)
  Receive Date: 20070223
  Receipt Date: 20070215
  Transmission Date: 20070707
  Serious: Yes (Other)
  Sender: FDA-Public Use
  Company Number: NL-JNJFOC-20070202034

PATIENT
  Age: 53 Year
  Sex: Male

DRUGS (4)
  1. DURAGESIC-100 [Suspect]
     Indication: ANALGESIC EFFECT
     Route: 062
  2. OXYCONTIN [Concomitant]
     Route: 065
  3. OXYCONTIN [Concomitant]
     Indication: HERNIA
     Route: 065
  4. MOVICOLON [Concomitant]
     Dosage: 1-2 PER DAY
     Route: 065

REACTIONS (4)
  - ARTHROPATHY [None]
  - MUSCULAR WEAKNESS [None]
  - OVERDOSE [None]
  - PANIC DISORDER [None]
